FAERS Safety Report 16438164 (Version 3)
Quarter: 2019Q3

REPORT INFORMATION
  Report Type: Spontaneous
  Country: FR (occurrence: FR)
  Receive Date: 20190617
  Receipt Date: 20190820
  Transmission Date: 20191004
  Serious: Yes (Other)
  Sender: FDA-Public Use
  Company Number: FR-CELLTRION INC.-2019FR021890

PATIENT

DRUGS (2)
  1. REMSIMA [Suspect]
     Active Substance: INFLIXIMAB
     Indication: HIDRADENITIS
     Dosage: 5MG/KG RENEWED AT WEEKS 2 AND 6, THEN EVERY 8 WEEKS
     Route: 042
  2. REMSIMA [Suspect]
     Active Substance: INFLIXIMAB
     Indication: OFF LABEL USE

REACTIONS (3)
  - Off label use [Recovering/Resolving]
  - Intentional product use issue [Recovering/Resolving]
  - Melanocytic naevus [Recovering/Resolving]
